FAERS Safety Report 4352880-6 (Version None)
Quarter: 2004Q2

REPORT INFORMATION
  Report Type: 
  Country: None (occurrence: None)
  Receive Date: 20040428
  Receipt Date: 20040419
  Transmission Date: 20050107
  Serious: Yes (Hospitalization)
  Sender: FDA-Public Use
  Company Number: B0330377A

PATIENT
  Age: 56 Year
  Sex: Male

DRUGS (1)
  1. AMOXIL [Suspect]
     Dosage: 500 MG / SINGLE DOSE / ORAL
     Route: 048

REACTIONS (18)
  - ACUTE CORONARY SYNDROME [None]
  - ALANINE AMINOTRANSFERASE INCREASED [None]
  - ANAPHYLACTIC REACTION [None]
  - ANGINA PECTORIS [None]
  - ASPARTATE AMINOTRANSFERASE INCREASED [None]
  - BLOOD CREATINE PHOSPHOKINASE INCREASED [None]
  - BLOOD CREATINE PHOSPHOKINASE MB INCREASED [None]
  - BLOOD LACTATE DEHYDROGENASE INCREASED [None]
  - CHEST PAIN [None]
  - DRUG HYPERSENSITIVITY [None]
  - DYSPNOEA [None]
  - MEDICATION ERROR [None]
  - MYOGLOBIN BLOOD INCREASED [None]
  - PRURIGO [None]
  - RASH ERYTHEMATOUS [None]
  - RASH PRURITIC [None]
  - SKIN TEST POSITIVE [None]
  - TROPONIN I INCREASED [None]
